FAERS Safety Report 8585430-9 (Version None)
Quarter: 2012Q3

REPORT INFORMATION
  Report Type: 
  Country: None (occurrence: None)
  Receive Date: 20120810
  Receipt Date: 20120806
  Transmission Date: 20120928
  Serious: Yes (Hospitalization, Other)
  Sender: FDA-Public Use
  Company Number: CA-ABBOTT-12P-028-0917379-00

PATIENT
  Sex: Female

DRUGS (2)
  1. HUMIRA [Suspect]
     Indication: RHEUMATOID ARTHRITIS
     Route: 058
     Dates: start: 20090223, end: 20120418
  2. HUMIRA [Suspect]
     Dates: start: 20120604, end: 20120716

REACTIONS (4)
  - OSTEOARTHRITIS [None]
  - PYREXIA [None]
  - ARTHRITIS INFECTIVE [None]
  - JOINT SWELLING [None]
